FAERS Safety Report 16070182 (Version 1)
Quarter: 2019Q1

REPORT INFORMATION
  Report Type: Spontaneous
  Country: DE (occurrence: DE)
  Receive Date: 20190314
  Receipt Date: 20190314
  Transmission Date: 20190418
  Serious: Yes (Other)
  Sender: FDA-Public Use
  Company Number: DE-TEVA-2019-DE-1023292

PATIENT
  Age: 8 Decade
  Sex: Male

DRUGS (2)
  1. METHOTREXATE. [Suspect]
     Active Substance: METHOTREXATE
     Indication: RHEUMATOID ARTHRITIS
     Dosage: RECEIVED FOR 2 YEARS AND 4 MONTHS
     Route: 065
     Dates: start: 2013
  2. PREDNISOLONE. [Concomitant]
     Active Substance: PREDNISOLONE
     Indication: RHEUMATOID ARTHRITIS
     Dosage: 15 MILLIGRAM DAILY; RECEIVED FOR 2 YEARS AND 4 MONTHS
     Route: 014
     Dates: start: 2013

REACTIONS (3)
  - Anaplastic large cell lymphoma T- and null-cell types [Unknown]
  - Chronic myelomonocytic leukaemia [Unknown]
  - Angiocentric lymphoma [Unknown]

NARRATIVE: CASE EVENT DATE: 201403
